APPROVED DRUG PRODUCT: ACYCLOVIR
Active Ingredient: ACYCLOVIR
Strength: 200MG
Dosage Form/Route: CAPSULE;ORAL
Application: A075677 | Product #001 | TE Code: AB
Applicant: APOTEX INC
Approved: Sep 28, 2005 | RLD: No | RS: Yes | Type: RX